FAERS Safety Report 16095135 (Version 4)
Quarter: 2019Q2

REPORT INFORMATION
  Report Type: Spontaneous
  Country: JP (occurrence: JP)
  Receive Date: 20190320
  Receipt Date: 20190402
  Transmission Date: 20190711
  Serious: Yes (Hospitalization)
  Sender: FDA-Public Use
  Company Number: JP-DSJP-DSJ-2019-109548AA

PATIENT

DRUGS (7)
  1. POLYSTYRENE SULFONATE CALCIUM [Suspect]
     Active Substance: CALCIUM POLYSTYRENE SULFONATE
     Dosage: UNK
     Route: 048
  2. FEBUXOSTAT. [Suspect]
     Active Substance: FEBUXOSTAT
     Dosage: 20 MG, QD
     Route: 048
  3. CILNIDIPINE [Suspect]
     Active Substance: CILNIDIPINE
     Dosage: 10 MG, QD
     Route: 048
  4. SODIUM BICARBONATE. [Concomitant]
     Active Substance: SODIUM BICARBONATE
     Dosage: 3 G
     Route: 048
  5. OLMETEC OD TABLETS 20MG [Suspect]
     Active Substance: OLMESARTAN MEDOXOMIL
     Indication: HYPERTENSION
     Dosage: 20 MG, QD
     Route: 048
  6. ROSUVASTATIN                       /01588602/ [Suspect]
     Active Substance: ROSUVASTATIN CALCIUM
     Dosage: 2.5 MG, QD
     Route: 048
  7. FERROUS CITRATE [Concomitant]
     Active Substance: FERROUS CITRATE
     Dosage: 50 MG
     Route: 048

REACTIONS (1)
  - Supraventricular tachycardia [Unknown]
